FAERS Safety Report 16339258 (Version 1)
Quarter: 2019Q2

REPORT INFORMATION
  Report Type: Report from Study
  Country: IT (occurrence: IT)
  Receive Date: 20190521
  Receipt Date: 20190521
  Transmission Date: 20190711
  Serious: Yes (Other)
  Sender: FDA-Public Use
  Company Number: IT-MYLANLABS-2019M1046966

PATIENT
  Age: 30 Year
  Sex: Male

DRUGS (1)
  1. LEVOFLOXACIN. [Suspect]
     Active Substance: LEVOFLOXACIN
     Indication: NASAL POLYPS
     Dosage: 500 MG, TOTAL
     Route: 048
     Dates: start: 20180915, end: 20180915

REACTIONS (4)
  - Urticaria [Recovering/Resolving]
  - Rash [Recovering/Resolving]
  - Throat irritation [Recovering/Resolving]
  - Conjunctival hyperaemia [Recovering/Resolving]

NARRATIVE: CASE EVENT DATE: 20180915
